FAERS Safety Report 19881392 (Version 2)
Quarter: 2022Q1

REPORT INFORMATION
  Report Type: Report from Study
  Country: DE (occurrence: DE)
  Receive Date: 20210925
  Receipt Date: 20220201
  Transmission Date: 20220423
  Serious: No
  Sender: FDA-Public Use
  Company Number: DE-TAKEDA-2020TUS049514

PATIENT
  Age: 48 Year
  Sex: Male

DRUGS (21)
  1. TEDUGLUTIDE [Suspect]
     Active Substance: TEDUGLUTIDE
     Indication: Short-bowel syndrome
     Dosage: 3.7 MILLIGRAM, QD, (0.05 MG/KG, 7 TED DOSES PER WEEK)
     Route: 058
     Dates: start: 20150903, end: 20170316
  2. TEDUGLUTIDE [Suspect]
     Active Substance: TEDUGLUTIDE
     Indication: Short-bowel syndrome
     Dosage: 3.7 MILLIGRAM, QD, (0.05 MG/KG, 7 TED DOSES PER WEEK)
     Route: 058
     Dates: start: 20150903, end: 20170316
  3. TEDUGLUTIDE [Suspect]
     Active Substance: TEDUGLUTIDE
     Indication: Short-bowel syndrome
     Dosage: 3.7 MILLIGRAM, QD, (0.05 MG/KG, 7 TED DOSES PER WEEK)
     Route: 058
     Dates: start: 20150903, end: 20170316
  4. TEDUGLUTIDE [Suspect]
     Active Substance: TEDUGLUTIDE
     Indication: Short-bowel syndrome
     Dosage: 3.7 MILLIGRAM, QD, (0.05 MG/KG, 7 TED DOSES PER WEEK)
     Route: 058
     Dates: start: 20150903, end: 20170316
  5. TEDUGLUTIDE [Suspect]
     Active Substance: TEDUGLUTIDE
     Indication: Cryptitis
     Dosage: 3.7 MILLIGRAM, QD, (0.05 MG/KG/7 TED DOSES PER WEEK)
     Route: 058
     Dates: start: 20170505
  6. TEDUGLUTIDE [Suspect]
     Active Substance: TEDUGLUTIDE
     Indication: Cryptitis
     Dosage: 3.7 MILLIGRAM, QD, (0.05 MG/KG/7 TED DOSES PER WEEK)
     Route: 058
     Dates: start: 20170505
  7. TEDUGLUTIDE [Suspect]
     Active Substance: TEDUGLUTIDE
     Indication: Cryptitis
     Dosage: 3.7 MILLIGRAM, QD, (0.05 MG/KG/7 TED DOSES PER WEEK)
     Route: 058
     Dates: start: 20170505
  8. TEDUGLUTIDE [Suspect]
     Active Substance: TEDUGLUTIDE
     Indication: Cryptitis
     Dosage: 3.7 MILLIGRAM, QD, (0.05 MG/KG/7 TED DOSES PER WEEK)
     Route: 058
     Dates: start: 20170505
  9. TEDUGLUTIDE [Suspect]
     Active Substance: TEDUGLUTIDE
     Dosage: 5 MILLIGRAM, QD
     Route: 058
     Dates: start: 20170505
  10. TEDUGLUTIDE [Suspect]
     Active Substance: TEDUGLUTIDE
     Dosage: 5 MILLIGRAM, QD
     Route: 058
     Dates: start: 20170505
  11. TEDUGLUTIDE [Suspect]
     Active Substance: TEDUGLUTIDE
     Dosage: 5 MILLIGRAM, QD
     Route: 058
     Dates: start: 20170505
  12. TEDUGLUTIDE [Suspect]
     Active Substance: TEDUGLUTIDE
     Dosage: 5 MILLIGRAM, QD
     Route: 058
     Dates: start: 20170505
  13. TEDUGLUTIDE [Suspect]
     Active Substance: TEDUGLUTIDE
     Dosage: 5 MILLIGRAM, QD
     Route: 058
     Dates: start: 20150903, end: 20171016
  14. TEDUGLUTIDE [Suspect]
     Active Substance: TEDUGLUTIDE
     Dosage: 5 MILLIGRAM, QD
     Route: 058
     Dates: start: 20150903, end: 20171016
  15. TEDUGLUTIDE [Suspect]
     Active Substance: TEDUGLUTIDE
     Dosage: 5 MILLIGRAM, QD
     Route: 058
     Dates: start: 20150903, end: 20171016
  16. TEDUGLUTIDE [Suspect]
     Active Substance: TEDUGLUTIDE
     Dosage: 5 MILLIGRAM, QD
     Route: 058
     Dates: start: 20150903, end: 20171016
  17. DEXFOSFOSERINE [Concomitant]
     Active Substance: DEXFOSFOSERINE
     Indication: Vitamin B complex deficiency
     Dosage: 999 MILLIGRAM, QD
     Route: 048
     Dates: start: 20190618
  18. GLUTAMINE [Concomitant]
     Active Substance: GLUTAMINE
     Indication: Vitamin B complex deficiency
     Dosage: 999 MILLIGRAM, QD
     Route: 048
     Dates: start: 20190618
  19. VITAMIN K [Concomitant]
     Active Substance: PHYTONADIONE
     Indication: Vitamin K deficiency
     Dosage: 5 GTT DROPS, QD
     Route: 048
     Dates: start: 20210913
  20. VITAMIN B12 [Concomitant]
     Active Substance: CYANOCOBALAMIN
     Indication: Vitamin B12 deficiency
     Dosage: 99 UNK, MONTHLY
     Route: 058
     Dates: start: 20210302
  21. ZINC OROTATE [Concomitant]
     Active Substance: ZINC OROTATE
     Indication: Zinc deficiency
     Dosage: 99 UNK, QD
     Route: 048
     Dates: start: 20210913

REACTIONS (4)
  - Tooth infection [Recovered/Resolved]
  - Dysuria [Recovered/Resolved]
  - Large intestine polyp [Recovered/Resolved]
  - Haematuria [Recovered/Resolved]

NARRATIVE: CASE EVENT DATE: 20200904
